FAERS Safety Report 25106996 (Version 1)
Quarter: 2025Q1

REPORT INFORMATION
  Report Type: Other
  Country: PT (occurrence: PT)
  Receive Date: 20250321
  Receipt Date: 20250321
  Transmission Date: 20250408
  Serious: Yes (Other)
  Sender: B BRAUN
  Company Number: PT-B.Braun Medical Inc.-2173426

PATIENT

DRUGS (3)
  1. DEXTROSE [Suspect]
     Active Substance: DEXTROSE MONOHYDRATE
     Indication: Hypoglycaemia
  2. AMPICILLIN [Concomitant]
     Active Substance: AMPICILLIN
  3. GENTAMICIN [Concomitant]
     Active Substance: GENTAMICIN

REACTIONS (2)
  - Neonatal hyperglycaemia [Recovering/Resolving]
  - Foetal exposure during pregnancy [Recovering/Resolving]
